FAERS Safety Report 8609386-5 (Version None)
Quarter: 2012Q3

REPORT INFORMATION
  Report Type: 
  Country: None (occurrence: None)
  Receive Date: 20120821
  Receipt Date: 20120814
  Transmission Date: 20120928
  Serious: Yes (Death, Hospitalization, Other)
  Sender: FDA-Public Use
  Company Number: DE-GENZYME-201014494GPV

PATIENT
  Sex: Male
  Weight: 86 kg

DRUGS (12)
  1. VINCRISTINE [Suspect]
     Indication: T-CELL LYMPHOMA
     Dosage: 1 MG, QD (DAY 1)
     Route: 042
     Dates: start: 20091126, end: 20100111
  2. FILGRASTIM [Suspect]
     Indication: T-CELL LYMPHOMA
     Dosage: 48 UNK, QD (DAY 1)
     Route: 058
     Dates: start: 20091225, end: 20100115
  3. TORSEMIDE [Concomitant]
     Indication: HYPERTENSION
     Dosage: 40 MG, QD
     Route: 048
     Dates: start: 20100204
  4. METOPROLOL SUCCINATE [Concomitant]
     Indication: HYPERTENSION
     Dosage: 23.75 MG, QD
     Route: 048
     Dates: start: 20100202
  5. HEPARIN [Concomitant]
     Indication: ATRIAL FIBRILLATION
     Dosage: UNK
     Route: 065
  6. MABCAMPATH [Suspect]
     Indication: T-CELL LYMPHOMA
     Dosage: 30 MG, DAY 4 AND 5 OF EACH CYCLE 1-3
     Route: 058
     Dates: start: 20091210, end: 20100115
  7. MARCUMAR [Concomitant]
     Indication: ATRIAL FIBRILLATION
     Dosage: UNK
     Route: 065
  8. PREDNISONE [Suspect]
     Indication: T-CELL LYMPHOMA
     Dosage: 10 MG, QD (DAY 1-5)
     Route: 048
     Dates: start: 20091127, end: 20100110
  9. CYCLOPHOSPHAMIDE [Suspect]
     Indication: T-CELL LYMPHOMA
     Dosage: 1500 MG, QD (DAY 1)
     Route: 042
     Dates: start: 20091207, end: 20100111
  10. PANTOPRAZOLE [Concomitant]
     Indication: PROPHYLAXIS
     Dosage: 40 MG, QD
     Route: 048
     Dates: start: 20090927
  11. SULFAMETHOPRIM [Concomitant]
     Indication: PROPHYLAXIS
     Dosage: 160800 MG, 3X/W
     Route: 048
     Dates: start: 20091202
  12. DOXORUBICIN HCL [Suspect]
     Indication: T-CELL LYMPHOMA
     Dosage: 100 MG, QD (DAY 1)
     Route: 042
     Dates: start: 20091207, end: 20100111

REACTIONS (6)
  - LYMPHOMA [None]
  - STAPHYLOCOCCAL SEPSIS [None]
  - PULMONARY INFARCTION [None]
  - PULMONARY EMBOLISM [None]
  - PNEUMONIA [None]
  - CYTOMEGALOVIRUS INFECTION [None]
